FAERS Safety Report 10146425 (Version 1)
Quarter: 2014Q2

REPORT INFORMATION
  Report Type: Spontaneous
  Country: NZ (occurrence: NZ)
  Receive Date: 20140501
  Receipt Date: 20140501
  Transmission Date: 20141212
  Serious: Yes (Death, Hospitalization, Other)
  Sender: FDA-Public Use
  Company Number: NZ-TAKEDA-2014TUS003426

PATIENT
  Age: 66 Year
  Sex: Male

DRUGS (1)
  1. FEBUXOSTAT [Suspect]
     Indication: GOUT
     Dosage: 80 MG, QD
     Route: 048
     Dates: start: 20140312, end: 20140326

REACTIONS (5)
  - Tongue ulceration [Fatal]
  - Multi-organ failure [Fatal]
  - Renal failure [Fatal]
  - Respiratory distress [Fatal]
  - Hepatic function abnormal [Fatal]
